FAERS Safety Report 16566941 (Version 2)
Quarter: 2020Q1

REPORT INFORMATION
  Report Type: Report from Study
  Country: DE (occurrence: DE)
  Receive Date: 20190712
  Receipt Date: 20200124
  Transmission Date: 20200409
  Serious: Yes (Hospitalization, Other)
  Sender: FDA-Public Use
  Company Number: DE-PFIZER INC-2019293125

PATIENT
  Age: 63 Year
  Sex: Female

DRUGS (11)
  1. TOCILIZUMAB. [Suspect]
     Active Substance: TOCILIZUMAB
     Indication: RHEUMATOID ARTHRITIS
     Dosage: 162 MG, WEEKLY
     Route: 058
     Dates: start: 20160301, end: 201610
  2. PREDNISOLON [PREDNISOLONE] [Concomitant]
     Active Substance: PREDNISOLONE
     Dosage: 2 MG, 1X/DAY
     Route: 065
  3. METHOTREXATE. [Concomitant]
     Active Substance: METHOTREXATE
     Indication: RHEUMATOID ARTHRITIS
     Dosage: 15 MG, UNK
     Route: 065
  4. TOCILIZUMAB. [Suspect]
     Active Substance: TOCILIZUMAB
     Dosage: 162 MG, WEEKLY
     Route: 058
     Dates: start: 201709, end: 201709
  5. LATANOPROST. [Suspect]
     Active Substance: LATANOPROST
     Dosage: 1 UNK, 1X/DAY (LEFT AND RIGHT AT)
     Route: 065
  6. DEKRISTOL [Concomitant]
     Active Substance: CHOLECALCIFEROL
     Dosage: 20000 IU, CYCLIC (EVERY TWO WEEKS)
     Route: 065
  7. RAMIPRIL. [Concomitant]
     Active Substance: RAMIPRIL
     Dosage: 5 MG, 1X/DAY
     Route: 065
  8. PROLIA [Concomitant]
     Active Substance: DENOSUMAB
     Dosage: 1 UNK, CYCLIC (EVERY 6 MONTHS)
     Route: 065
  9. EUTHYROX [Concomitant]
     Active Substance: LEVOTHYROXINE SODIUM
     Dosage: 75 UG, UNK
     Route: 065
  10. TOCILIZUMAB. [Suspect]
     Active Substance: TOCILIZUMAB
     Dosage: 162 MG, WEEKLY
     Route: 058
     Dates: start: 201709, end: 201709
  11. FOLIC ACID. [Concomitant]
     Active Substance: FOLIC ACID
     Dosage: 1 UNK, 1X/DAY
     Route: 065

REACTIONS (21)
  - Dactylitis [Recovered/Resolved]
  - Inflammation of wound [Unknown]
  - Back pain [Not Recovered/Not Resolved]
  - Cystitis noninfective [Recovered/Resolved]
  - Lipoma [Recovered/Resolved]
  - Peripheral swelling [Recovered/Resolved]
  - Glaucoma [Not Recovered/Not Resolved]
  - Nasopharyngitis [Recovered/Resolved]
  - Sciatica [Recovered/Resolved]
  - Migraine [Recovered/Resolved]
  - Alanine aminotransferase increased [Recovering/Resolving]
  - Inflammation [Recovered/Resolved]
  - Movement disorder [Recovered/Resolved]
  - Rheumatoid arthritis [Recovered/Resolved]
  - Liver function test increased [Not Recovered/Not Resolved]
  - Foot deformity [Recovered/Resolved]
  - Pain in extremity [Recovered/Resolved]
  - Tooth disorder [Recovered/Resolved]
  - Macular degeneration [Not Recovered/Not Resolved]
  - Tooth infection [Recovered/Resolved]
  - Intraocular pressure increased [Recovering/Resolving]

NARRATIVE: CASE EVENT DATE: 201711
